FAERS Safety Report 19736128 (Version 1)
Quarter: 2021Q3

REPORT INFORMATION
  Report Type: Spontaneous
  Country: US (occurrence: US)
  Receive Date: 20210824
  Receipt Date: 20210824
  Transmission Date: 20211014
  Serious: No
  Sender: FDA-Public Use
  Company Number: US-SA-2021SA275946

PATIENT
  Sex: Female

DRUGS (2)
  1. DUPIXENT [Suspect]
     Active Substance: DUPILUMAB
     Indication: DERMATITIS ATOPIC
     Route: 058
  2. SULFAMETHOXAZOLE;TRIMIPRAMINE [Concomitant]

REACTIONS (3)
  - Impaired quality of life [Unknown]
  - Product use issue [Unknown]
  - Eczema [Unknown]
